FAERS Safety Report 19676075 (Version 1)
Quarter: 2021Q3

REPORT INFORMATION
  Report Type: Report from Study
  Country: DE (occurrence: DE)
  Receive Date: 20210809
  Receipt Date: 20210809
  Transmission Date: 20211014
  Serious: Yes (Hospitalization, Other)
  Sender: FDA-Public Use
  Company Number: DE-TEVA-2021-DE-1939199

PATIENT
  Age: 25 Year
  Sex: Female
  Weight: 63 kg

DRUGS (8)
  1. ESOMEPRAZOLE. [Suspect]
     Active Substance: ESOMEPRAZOLE MAGNESIUM
     Indication: GASTRIC DISORDER
     Dosage: 20 MILLIGRAM, AS REQ D
     Route: 048
     Dates: end: 201909
  2. ASTONIN H [Suspect]
     Active Substance: FLUDROCORTISONE
     Dosage: .2 MILLIGRAM DAILY;  1X/DAY:QD
     Route: 048
     Dates: start: 202001
  3. HYDROCORTISONE. [Suspect]
     Active Substance: HYDROCORTISONE
     Indication: ADRENAL INSUFFICIENCY
     Dosage: 25 MILLIGRAM DAILY; 1X/DAY:QD
     Route: 048
     Dates: start: 20200226, end: 20200409
  4. ASTONIN H [Suspect]
     Active Substance: FLUDROCORTISONE
     Indication: HYPOALDOSTERONISM
     Dosage: .15 MILLIGRAM DAILY; 1X/DAY:QD
     Route: 048
     Dates: end: 202001
  5. HYDROCORTISONE. [Suspect]
     Active Substance: HYDROCORTISONE
     Indication: ADDISON^S DISEASE
     Dosage: 20 MILLIGRAM DAILY; 1X/DAY:QD
     Route: 048
     Dates: start: 201510, end: 20200225
  6. NAUSEMA [Suspect]
     Active Substance: CYANOCOBALAMIN\PYRIDOXINE HYDROCHLORIDE\THIAMINE
     Indication: HYPEREMESIS GRAVIDARUM
     Dosage: 1 DOSAGE FORMS DAILY; UNK,1X/DAY:QD
     Route: 048
  7. FOLIO FORTE [Suspect]
     Active Substance: FOLIC ACID\VITAMINS
     Indication: ALOPECIA
     Dosage: 3.6 GRAM DAILY; 1X/DAY:QD
     Route: 048
  8. ASTONIN H [Suspect]
     Active Substance: FLUDROCORTISONE
     Dosage: .1 MILLIGRAM DAILY;  1X/DAY:QD
     Route: 048
     Dates: start: 201906, end: 20190926

REACTIONS (1)
  - Hyperemesis gravidarum [Recovered/Resolved]

NARRATIVE: CASE EVENT DATE: 20191029
